FAERS Safety Report 12770976 (Version 2)
Quarter: 2016Q4

REPORT INFORMATION
  Report Type: Spontaneous
  Country: US (occurrence: US)
  Receive Date: 20160922
  Receipt Date: 20161104
  Transmission Date: 20170207
  Serious: Yes (Hospitalization, Other)
  Sender: FDA-Public Use
  Company Number: US-PFIZER INC-2016436561

PATIENT
  Age: 69 Year
  Sex: Female
  Weight: 114.3 kg

DRUGS (4)
  1. LYRICA [Suspect]
     Active Substance: PREGABALIN
     Indication: FIBROMYALGIA
     Dosage: 75 MG, 2X/DAY (ONCE IN THE MORNING AND ONCE AT NIGHT)
     Route: 048
  2. LYRICA [Suspect]
     Active Substance: PREGABALIN
     Dosage: 150 MG, 2X/DAY
  3. CELEBREX [Concomitant]
     Active Substance: CELECOXIB
     Dosage: UNK
  4. LYRICA [Suspect]
     Active Substance: PREGABALIN
     Dosage: UNK
     Dates: start: 2005

REACTIONS (10)
  - Femur fracture [Recovering/Resolving]
  - Condition aggravated [Unknown]
  - Fibromyalgia [Unknown]
  - Muscular weakness [Unknown]
  - Musculoskeletal disorder [Unknown]
  - Tendon rupture [Recovering/Resolving]
  - Fall [Recovering/Resolving]
  - Muscle rupture [Recovering/Resolving]
  - Mental impairment [Unknown]
  - Insomnia [Unknown]

NARRATIVE: CASE EVENT DATE: 201408
